FAERS Safety Report 24120783 (Version 1)
Quarter: 2024Q3

REPORT INFORMATION
  Report Type: Other
  Country: NL (occurrence: NL)
  Receive Date: 20240722
  Receipt Date: 20240722
  Transmission Date: 20241016
  Serious: Yes (Other)
  Sender: ASTELLAS
  Company Number: None

PATIENT
  Age: 82 Year
  Sex: Female

DRUGS (7)
  1. SOLIFENACIN [Suspect]
     Active Substance: SOLIFENACIN
     Indication: Urinary incontinence
     Dosage: 10 MG, ONCE DAILY (THE INDICATED DOSE IS/WAS PER DAY, INITIALLY 10 MG)
     Route: 065
     Dates: start: 20210301
  2. SOLIFENACIN [Suspect]
     Active Substance: SOLIFENACIN
     Dosage: 5 MG, ONCE DAILY (THEN 5 MG A DAY)
     Route: 065
     Dates: start: 20221215, end: 20240301
  3. NEBIVOLOL [Concomitant]
     Active Substance: NEBIVOLOL
     Indication: Product used for unknown indication
     Dosage: 5 MG, UNKNOWN FREQ. (TABLET)
     Route: 065
  4. ESOMEPRAZOLE [Concomitant]
     Active Substance: ESOMEPRAZOLE
     Indication: Product used for unknown indication
     Dosage: UNK UNK, UNKNOWN FREQ. (GASTRIC-RESISTANT CAPSULE)
     Route: 065
  5. FURADANTINA MC [Concomitant]
     Indication: Product used for unknown indication
     Dosage: UNK UNK, UNKNOWN FREQ. (CAPSULE)
     Route: 065
  6. ELIQUIS [Concomitant]
     Active Substance: APIXABAN
     Indication: Product used for unknown indication
     Dosage: 2.5 MG, TWICE DAILY (2X PER DAY 2.5 MG TABLET)
     Route: 065
  7. CITALOPRAM [Concomitant]
     Active Substance: CITALOPRAM\CITALOPRAM HYDROBROMIDE
     Indication: Product used for unknown indication
     Dosage: 10 MG, UNKNOWN FREQ. (COATED TABLET)
     Route: 065

REACTIONS (2)
  - Dementia [Recovered/Resolved]
  - Disorientation [Recovered/Resolved]
